FAERS Safety Report 5323161-9 (Version None)
Quarter: 2007Q2

REPORT INFORMATION
  Report Type: 
  Country: None (occurrence: None)
  Receive Date: 20070220
  Receipt Date: 20061116
  Transmission Date: 20071010
  Serious: No
  Sender: FDA-Public Use
  Company Number: WAES 0611USA05123

PATIENT
  Age: 70 Year
  Sex: Female

DRUGS (5)
  1. JANUVIA [Suspect]
     Indication: BLOOD GLUCOSE ABNORMAL
     Dosage: 100 MG/DAILY/PO
     Route: 048
     Dates: start: 20061116
  2. BONIVA [Concomitant]
  3. ENAPREN [Concomitant]
  4. NORCO [Concomitant]
  5. ZOLOFT [Concomitant]

REACTIONS (3)
  - PRURITUS [None]
  - SKIN FISSURES [None]
  - THROAT TIGHTNESS [None]
